FAERS Safety Report 10336617 (Version 1)
Quarter: 2014Q3

REPORT INFORMATION
  Report Type: Spontaneous
  Country: US (occurrence: US)
  Receive Date: 20140723
  Receipt Date: 20140723
  Transmission Date: 20150326
  Serious: No
  Sender: FDA-Public Use
  Company Number: US-BRISTOL-MYERS SQUIBB COMPANY-20561072

PATIENT
  Sex: Male
  Weight: 79.36 kg

DRUGS (1)
  1. COUMADIN [Suspect]
     Active Substance: WARFARIN SODIUM
     Dosage: RESTARTED COUMADIN AT A DOSE OF 4 MG.
     Dates: start: 20140131

REACTIONS (1)
  - International normalised ratio fluctuation [Unknown]
